FAERS Safety Report 4834849-8 (Version None)
Quarter: 2005Q4

REPORT INFORMATION
  Report Type: 
  Country: None (occurrence: None)
  Receive Date: 20051115
  Receipt Date: 20051031
  Transmission Date: 20060501
  Serious: Yes (Other)
  Sender: FDA-Public Use
  Company Number: HECT-10140

PATIENT
  Age: 51 Year
  Sex: Male

DRUGS (1)
  1. HECTOROL [Suspect]
     Indication: HYPERPARATHYROIDISM SECONDARY
     Dosage: 0.5 MCG QD PO
     Route: 048
     Dates: start: 20050422, end: 20051001

REACTIONS (1)
  - NEPHRITIS INTERSTITIAL [None]
